FAERS Safety Report 17722375 (Version 3)
Quarter: 2020Q4

REPORT INFORMATION
  Report Type: Spontaneous
  Country: US (occurrence: US)
  Receive Date: 20200429
  Receipt Date: 20201111
  Transmission Date: 20210113
  Serious: Yes (Other)
  Sender: FDA-Public Use
  Company Number: US-PFIZER INC-2020171966

PATIENT
  Age: 69 Year
  Sex: Female
  Weight: 58.97 kg

DRUGS (1)
  1. NORPACE CR [Suspect]
     Active Substance: DISOPYRAMIDE PHOSPHATE
     Indication: ARRHYTHMIA
     Dosage: 150 MG, 4X/DAY (EVERY SIX HOURS)
     Route: 048

REACTIONS (7)
  - Hip fracture [Unknown]
  - Pelvic fracture [Unknown]
  - Wrist fracture [Unknown]
  - Visual impairment [Unknown]
  - Fall [Unknown]
  - Lower limb fracture [Unknown]
  - Hypoacusis [Unknown]

NARRATIVE: CASE EVENT DATE: 2005
